FAERS Safety Report 5977177-X (Version None)
Quarter: 2008Q4

REPORT INFORMATION
  Report Type: 
  Country: None (occurrence: None)
  Receive Date: 20081201
  Receipt Date: 20081201
  Transmission Date: 20090506
  Serious: Yes (Other)
  Sender: FDA-Public Use
  Company Number: None

PATIENT
  Age: 37 Year
  Sex: Male
  Weight: 97.5234 kg

DRUGS (1)
  1. CLARITHROMYCIN [Suspect]
     Indication: COUGH
     Dosage: 500 MG 1X PER DAY PO
     Route: 048
     Dates: start: 20080829, end: 20080912

REACTIONS (2)
  - DEAFNESS UNILATERAL [None]
  - TINNITUS [None]
